FAERS Safety Report 7295016-4 (Version None)
Quarter: 2011Q1

REPORT INFORMATION
  Report Type: 
  Country: None (occurrence: None)
  Receive Date: 20110216
  Receipt Date: 20110207
  Transmission Date: 20110831
  Serious: Yes (Other)
  Sender: FDA-Public Use
  Company Number: US-JNJFOC-20101204325

PATIENT
  Sex: Female
  Weight: 65.77 kg

DRUGS (11)
  1. METHOTREXATE [Concomitant]
     Indication: RHEUMATOID ARTHRITIS
     Route: 048
  2. METHOTREXATE [Concomitant]
     Indication: SYSTEMIC LUPUS ERYTHEMATOSUS
     Route: 048
  3. PERCOCET [Concomitant]
     Indication: PAIN
     Dosage: 4 - 6 HRS, AS NEEDED
  4. CYMBALTA [Concomitant]
     Indication: FIBROMYALGIA
     Route: 048
  5. SALAGEN [Concomitant]
     Indication: SJOGREN'S SYNDROME
     Dosage: UP TO 3 PER DAY
     Route: 048
  6. METHOCARBAMOL [Concomitant]
     Indication: NEURALGIA
     Route: 048
  7. NEXIUM [Concomitant]
     Indication: GASTRIC DISORDER
     Route: 048
  8. PREDNISONE [Concomitant]
     Indication: RHEUMATOID ARTHRITIS
     Route: 048
  9. REQUIP [Concomitant]
     Indication: RESTLESS LEGS SYNDROME
     Route: 048
  10. REMICADE [Suspect]
     Indication: RHEUMATOID ARTHRITIS
     Route: 042
  11. FOLIC ACID [Concomitant]
     Indication: RHEUMATOID ARTHRITIS
     Route: 048

REACTIONS (4)
  - NEURALGIA [None]
  - HEART RATE INCREASED [None]
  - FIBULA FRACTURE [None]
  - VITAMIN D DECREASED [None]
